FAERS Safety Report 8427849-2 (Version None)
Quarter: 2012Q2

REPORT INFORMATION
  Report Type: 
  Country: None (occurrence: None)
  Receive Date: 20120611
  Receipt Date: 20120531
  Transmission Date: 20120825
  Serious: Yes (Life-Threatening, Other)
  Sender: FDA-Public Use
  Company Number: AU-ASTRAZENECA-2012SE36096

PATIENT
  Age: 20 Year
  Sex: Male

DRUGS (7)
  1. DEXAMETHASONE [Suspect]
     Route: 065
  2. MIDAZOLAM [Concomitant]
  3. PROPOFOL [Suspect]
     Route: 042
     Dates: start: 20120412, end: 20120412
  4. NIMBEX [Suspect]
     Route: 065
     Dates: start: 20120412
  5. CEFTRIAXONE [Suspect]
     Route: 065
     Dates: start: 20120412
  6. FENTANYL [Suspect]
     Route: 065
     Dates: start: 20120412, end: 20120412
  7. ATROPINE [Concomitant]
     Dates: start: 20120412, end: 20120412

REACTIONS (6)
  - DYSPNOEA [None]
  - FLUSHING [None]
  - ANAPHYLACTIC REACTION [None]
  - APNOEA [None]
  - HYPOTENSION [None]
  - GENERALISED ERYTHEMA [None]
